FAERS Safety Report 7257534-4 (Version None)
Quarter: 2011Q1

REPORT INFORMATION
  Report Type: 
  Country: None (occurrence: None)
  Receive Date: 20110129
  Receipt Date: 20100519
  Transmission Date: 20110831
  Serious: No
  Sender: FDA-Public Use
  Company Number: US-ABBOTT-10P-163-0646728-00

PATIENT
  Sex: Female
  Weight: 93.524 kg

DRUGS (8)
  1. HUMIRA [Suspect]
     Indication: CROHN'S DISEASE
     Dates: start: 20100429
  2. POTASSIUM PHOSPHATES [Concomitant]
     Indication: PRODUCT USED FOR UNKNOWN INDICATION
  3. M.V.I. [Concomitant]
     Indication: PRODUCT USED FOR UNKNOWN INDICATION
  4. NEXIUM [Concomitant]
     Indication: PRODUCT USED FOR UNKNOWN INDICATION
  5. CURTURELLE [Concomitant]
     Indication: ENZYME SUPPLEMENTATION
  6. HUMIRA [Suspect]
     Route: 058
     Dates: start: 20100510
  7. MERCAPTOPURINE [Concomitant]
     Indication: PRODUCT USED FOR UNKNOWN INDICATION
     Dates: start: 20090901
  8. UNKNOWN THRUSH MEDICATION [Concomitant]
     Indication: PROPHYLAXIS

REACTIONS (2)
  - INJECTION SITE ANAESTHESIA [None]
  - HYPOAESTHESIA [None]
